FAERS Safety Report 25926619 (Version 1)
Quarter: 2025Q4

REPORT INFORMATION
  Report Type: Spontaneous
  Country: US (occurrence: US)
  Receive Date: 20251015
  Receipt Date: 20251015
  Transmission Date: 20260118
  Serious: No
  Sender: PFIZER
  Company Number: US-PFIZER INC-202500201495

PATIENT
  Age: 61 Year
  Sex: Female

DRUGS (1)
  1. IBRANCE [Suspect]
     Active Substance: PALBOCICLIB
     Indication: Breast cancer female
     Dosage: 100 MG, CYCLIC (TAKE 1 TABLET BY MOUTH DAILY ON DAYS 1-21, OFF 7 DAYS)
     Route: 048

REACTIONS (5)
  - Hypoaesthesia [Not Recovered/Not Resolved]
  - Dry skin [Not Recovered/Not Resolved]
  - Skin exfoliation [Not Recovered/Not Resolved]
  - Bone pain [Not Recovered/Not Resolved]
  - Stomatitis [Not Recovered/Not Resolved]
